FAERS Safety Report 4990023-6 (Version None)
Quarter: 2006Q2

REPORT INFORMATION
  Report Type: 
  Country: None (occurrence: None)
  Receive Date: 20060427
  Receipt Date: 20050309
  Transmission Date: 20061013
  Serious: Yes (Other)
  Sender: FDA-Public Use
  Company Number: 2005043242

PATIENT

DRUGS (1)
  1. BEXTRA [Suspect]
     Indication: ILL-DEFINED DISORDER
     Dosage: UNKNOWN (40 MG, UNKNOWN); ORAL
     Route: 048

REACTIONS (1)
  - STEVENS-JOHNSON SYNDROME [None]
